FAERS Safety Report 11237073 (Version 1)
Quarter: 2015Q3

REPORT INFORMATION
  Report Type: Spontaneous
  Country: UY (occurrence: UY)
  Receive Date: 20150703
  Receipt Date: 20150703
  Transmission Date: 20151125
  Serious: Yes (Hospitalization)
  Sender: FDA-Public Use
  Company Number: UY-JNJFOC-20150614533

PATIENT
  Age: 74 Year
  Sex: Female

DRUGS (2)
  1. XARELTO [Suspect]
     Active Substance: RIVAROXABAN
     Indication: THROMBOSIS PROPHYLAXIS
     Route: 048
     Dates: start: 2013
  2. XARELTO [Suspect]
     Active Substance: RIVAROXABAN
     Indication: ANTICOAGULANT THERAPY
     Route: 048
     Dates: start: 2013

REACTIONS (6)
  - Mucosal haemorrhage [Recovering/Resolving]
  - Haematuria [Recovering/Resolving]
  - Ecchymosis [Recovering/Resolving]
  - Haematoma [Recovering/Resolving]
  - Off label use [Unknown]
  - International normalised ratio increased [Recovering/Resolving]
